FAERS Safety Report 8635242 (Version 2)
Quarter: 2013Q3

REPORT INFORMATION
  Report Type: Report from Study
  Country: US (occurrence: US)
  Receive Date: 20120626
  Receipt Date: 20130801
  Transmission Date: 20140515
  Serious: Yes (Hospitalization)
  Sender: FDA-Public Use
  Company Number: US-UCBSA-026774

PATIENT
  Age: 26 Year
  Sex: Female
  Weight: 54 kg

DRUGS (23)
  1. CERTOLIZUMAB PEGOL [Suspect]
     Indication: CROHN^S DISEASE
     Route: 058
     Dates: start: 20090814, end: 20090911
  2. CERTOLIZUMAB PEGOL [Suspect]
     Indication: CROHN^S DISEASE
     Route: 058
     Dates: start: 20091021
  3. CERTOLIZUMAB PEGOL [Suspect]
     Indication: CROHN^S DISEASE
     Route: 058
     Dates: start: 20091130
  4. CERTOLIZUMAB PEGOL [Suspect]
     Indication: CROHN^S DISEASE
     Route: 058
     Dates: start: 20091215, end: 20100515
  5. CERTOLIZUMAB PEGOL [Suspect]
     Indication: CROHN^S DISEASE
     Route: 058
     Dates: start: 20100702
  6. IBUPROFEN [Concomitant]
     Indication: CROHN^S DISEASE
     Dosage: UNSPECIFIED DOSE
  7. IRON [Concomitant]
     Indication: CROHN^S DISEASE
     Dosage: UNSPECIFIED DOSE
  8. VITAMIN C [Concomitant]
     Indication: CROHN^S DISEASE
     Dosage: UNSPECIFIED DOSE
  9. VITAMIN D [Concomitant]
     Indication: CROHN^S DISEASE
     Dosage: UNSPECIFIED DOSE
  10. GABAPENTIN [Concomitant]
     Indication: CROHN^S DISEASE
     Dosage: UNSPECIFIED DOSE
  11. SYNTHROID [Concomitant]
     Indication: CROHN^S DISEASE
     Dosage: UNSPECIFIED DOSE
  12. TUMS [Concomitant]
     Indication: CROHN^S DISEASE
     Dosage: UNSPECIFIED DOSE
  13. CYMBALTA [Concomitant]
     Indication: CROHN^S DISEASE
     Dosage: UNSPECIFIED DOSE
  14. SEROQUEL [Concomitant]
     Indication: CROHN^S DISEASE
     Dosage: UNSPECIFIED DOSE
  15. PRAZOSIN [Concomitant]
     Indication: CROHN^S DISEASE
     Dosage: UNSPECIFIED DOSE
  16. BUSPAR [Concomitant]
     Indication: CROHN^S DISEASE
     Dosage: UNSPECIFIED DOSE
  17. LUTERA [Concomitant]
     Indication: CROHN^S DISEASE
     Dosage: UNSPECIFIED DOSE
  18. ZOLOFT [Concomitant]
     Indication: CROHN^S DISEASE
     Dosage: UNSPECIFIED DOSE
  19. ALEVE [Concomitant]
     Indication: CROHN^S DISEASE
     Dosage: UNSPECIFIED DOSE
  20. CLINDAMYCIN PHOSPHATE [Concomitant]
     Indication: CROHN^S DISEASE
     Dosage: UNSPECIFIED DOSE
     Dates: start: 200911, end: 2010
  21. DOXYCYCLINE [Concomitant]
     Indication: CROHN^S DISEASE
     Dosage: UNSPECIFIED DOSE
     Dates: start: 20091130
  22. TOPICAL CLINDAMYCIN [Concomitant]
     Indication: CROHN^S DISEASE
     Dosage: UNSPECIFIED DOSE
     Dates: start: 20091130
  23. TRIAMCINOLONE ACETONIDE CREAM [Concomitant]
     Indication: CROHN^S DISEASE
     Dosage: UNSPECIFIED DOSE
     Dates: start: 20091130

REACTIONS (1)
  - Clostridium difficile infection [Recovered/Resolved]
